APPROVED DRUG PRODUCT: METOPROLOL SUCCINATE
Active Ingredient: METOPROLOL SUCCINATE
Strength: EQ 200MG TARTRATE
Dosage Form/Route: TABLET, EXTENDED RELEASE;ORAL
Application: A203699 | Product #002 | TE Code: AB
Applicant: PHARMADAX INC
Approved: Mar 30, 2020 | RLD: No | RS: No | Type: RX